FAERS Safety Report 15594633 (Version 4)
Quarter: 2021Q4

REPORT INFORMATION
  Report Type: Report from Study
  Country: US (occurrence: US)
  Receive Date: 20181107
  Receipt Date: 20211210
  Transmission Date: 20220303
  Serious: Yes (Hospitalization, Other)
  Sender: FDA-Public Use
  Company Number: US-TAKEDA-2018TUS031936

PATIENT
  Sex: Female
  Weight: 92.971 kg

DRUGS (3)
  1. VEDOLIZUMAB [Suspect]
     Active Substance: VEDOLIZUMAB
     Indication: Crohn^s disease
     Dosage: 300 MILLIGRAM
     Route: 042
     Dates: start: 20170727, end: 20181031
  2. VEDOLIZUMAB [Suspect]
     Active Substance: VEDOLIZUMAB
     Indication: Colitis ulcerative
     Dosage: 300 MILLIGRAM, Q4WEEKS
     Route: 042
  3. PREDNISONE [Suspect]
     Active Substance: PREDNISONE
     Indication: Crohn^s disease
     Dosage: 60 MILLIGRAM, QD
     Route: 065

REACTIONS (7)
  - Crohn^s disease [Unknown]
  - Cushingoid [Unknown]
  - Weight increased [Unknown]
  - Feeling abnormal [Unknown]
  - Headache [Unknown]
  - Therapeutic reaction time decreased [Unknown]
  - Off label use [Unknown]
